FAERS Safety Report 25153717 (Version 3)
Quarter: 2025Q2

REPORT INFORMATION
  Report Type: Report from Study
  Country: US (occurrence: US)
  Receive Date: 20250403
  Receipt Date: 20250506
  Transmission Date: 20250716
  Serious: No
  Sender: BIOVITRUM
  Company Number: US-BIOVITRUM-2025-US-004509

PATIENT
  Age: 48 Year
  Sex: Male

DRUGS (2)
  1. KINERET [Suspect]
     Active Substance: ANAKINRA
     Indication: Ankylosing spondylitis
     Route: 058
     Dates: start: 20190418
  2. KINERET [Suspect]
     Active Substance: ANAKINRA
     Route: 058

REACTIONS (8)
  - Nasopharyngitis [Not Recovered/Not Resolved]
  - Product use issue [Not Recovered/Not Resolved]
  - Product availability issue [Unknown]
  - Illness [Not Recovered/Not Resolved]
  - Product dose omission issue [Unknown]
  - Insurance issue [Unknown]
  - Peripheral swelling [Unknown]
  - Gait disturbance [Unknown]
